FAERS Safety Report 9790839 (Version 3)
Quarter: 2014Q3

REPORT INFORMATION
  Report Type: Spontaneous
  Country: CN (occurrence: CN)
  Receive Date: 20131231
  Receipt Date: 20140718
  Transmission Date: 20150326
  Serious: Yes (Hospitalization)
  Sender: FDA-Public Use
  Company Number: PHHY2013CN153470

PATIENT
  Age: 71 Year
  Sex: Male

DRUGS (3)
  1. AMLODIPINE BESYLATE. [Concomitant]
     Active Substance: AMLODIPINE BESYLATE
  2. DIOVAN [Concomitant]
     Active Substance: VALSARTAN
     Indication: HYPERTENSION
     Dosage: 1 DF, QD (80 MG)
     Route: 048
     Dates: start: 20131202, end: 20131209
  3. LESCOL [Suspect]
     Active Substance: FLUVASTATIN SODIUM
     Indication: HYPERTENSION
     Dosage: 1 DF, QD (20 MG)
     Route: 048
     Dates: start: 20131202, end: 20131217

REACTIONS (5)
  - Chromaturia [Unknown]
  - Diarrhoea [Unknown]
  - Abdominal pain upper [Unknown]
  - Transaminases increased [Unknown]
  - Cold sweat [Unknown]

NARRATIVE: CASE EVENT DATE: 20131204
